FAERS Safety Report 8235331-0 (Version None)
Quarter: 2012Q1

REPORT INFORMATION
  Report Type: 
  Country: None (occurrence: None)
  Receive Date: 20120326
  Receipt Date: 20120320
  Transmission Date: 20120608
  Serious: Yes (Death, Hospitalization)
  Sender: FDA-Public Use
  Company Number: IN-ELI_LILLY_AND_COMPANY-IN201203006001

PATIENT
  Age: 70 Year
  Sex: Male

DRUGS (2)
  1. HUMALOG MIX 75/25 [Suspect]
     Indication: DIABETES MELLITUS
     Dosage: UNK UNK, IN THE MORNING AND EVENING
  2. HUMALOG [Suspect]
     Indication: DIABETES MELLITUS
     Dosage: UNK UNK, IN THE AFTERNOON
     Route: 058

REACTIONS (3)
  - DEATH [None]
  - PYREXIA [None]
  - GENERAL PHYSICAL HEALTH DETERIORATION [None]
